FAERS Safety Report 6588455-8 (Version None)
Quarter: 2010Q1

REPORT INFORMATION
  Report Type: 
  Country: None (occurrence: None)
  Receive Date: 20100218
  Receipt Date: 20091229
  Transmission Date: 20100710
  Serious: No
  Sender: FDA-Public Use
  Company Number: US-ALLERGAN-0915299US

PATIENT
  Age: 56 Year
  Sex: Female
  Weight: 54.422 kg

DRUGS (1)
  1. BOTOX COSMETIC [Suspect]
     Indication: SKIN WRINKLING
     Dosage: 60 UNITS, SINGLE
     Dates: start: 20090105, end: 20090105

REACTIONS (2)
  - DYSPHAGIA [None]
  - SPEECH DISORDER [None]
